FAERS Safety Report 11177457 (Version 1)
Quarter: 2015Q2

REPORT INFORMATION
  Report Type: Spontaneous
  Country: CH (occurrence: CH)
  Receive Date: 20150610
  Receipt Date: 20150610
  Transmission Date: 20150821
  Serious: Yes (Hospitalization)
  Sender: FDA-Public Use
  Company Number: CH-JNJFOC-20150600877

PATIENT
  Age: 51 Year
  Sex: Female
  Weight: 46.5 kg

DRUGS (18)
  1. EFFORTIL [Concomitant]
     Active Substance: ETILEFRINE HYDROCHLORIDE
     Indication: PRODUCT USED FOR UNKNOWN INDICATION
     Route: 065
     Dates: start: 2010
  2. DUSPATALIN [Concomitant]
     Active Substance: MEBEVERINE HYDROCHLORIDE
     Indication: GASTROINTESTINAL DISORDER
     Dosage: AS NECESSARY
     Route: 048
  3. PALEXIA [Concomitant]
     Active Substance: TAPENTADOL HYDROCHLORIDE
     Indication: PAIN MANAGEMENT
     Dosage: 200-0-200 MG/DAY + 2 X 100 MG IN RESERVE
     Route: 048
     Dates: start: 2010
  4. ZOMIG [Concomitant]
     Active Substance: ZOLMITRIPTAN
     Indication: MIGRAINE
     Dosage: AS NECESSARY
     Route: 045
  5. LAXOBERON [Concomitant]
     Active Substance: SODIUM PICOSULFATE
     Indication: GASTROINTESTINAL DISORDER
     Dosage: AS NECESSARY
     Route: 048
  6. SPASMO-CANULASE N [Concomitant]
     Indication: GASTROINTESTINAL DISORDER
     Route: 048
  7. DAFALGAN [Concomitant]
     Active Substance: ACETAMINOPHEN
     Indication: PAIN MANAGEMENT
     Dosage: AS NECESSARY
     Route: 048
  8. TOPAMAX [Suspect]
     Active Substance: TOPIRAMATE
     Indication: MIGRAINE
     Route: 048
     Dates: start: 2005
  9. TEMESTA [Concomitant]
     Active Substance: LORAZEPAM
     Indication: PRODUCT USED FOR UNKNOWN INDICATION
     Dosage: AT NIGHT
     Route: 048
     Dates: start: 2004
  10. PRIMPERAN [Concomitant]
     Active Substance: METOCLOPRAMIDE HYDROCHLORIDE
     Indication: GASTROINTESTINAL DISORDER
     Route: 054
     Dates: start: 2005
  11. GUTRON [Concomitant]
     Active Substance: MIDODRINE
     Indication: HYPOTENSION
     Dosage: IN THE MORNING
     Route: 065
  12. TRITTICO [Concomitant]
     Active Substance: TRAZODONE HYDROCHLORIDE
     Indication: PRODUCT USED FOR UNKNOWN INDICATION
     Dosage: AT NIGHT
     Route: 048
     Dates: start: 2010
  13. OMEPRAZOLE. [Concomitant]
     Active Substance: OMEPRAZOLE
     Indication: PRODUCT USED FOR UNKNOWN INDICATION
     Route: 048
  14. DULCOLAX [Concomitant]
     Active Substance: BISACODYL OR DOCUSATE SODIUM
     Indication: GASTROINTESTINAL DISORDER
     Dosage: AS NECESSARY
     Route: 048
  15. FLUCTINE [Suspect]
     Active Substance: FLUOXETINE HYDROCHLORIDE
     Indication: DEPRESSION
     Route: 048
  16. MEFENAMIC-ACID [Concomitant]
     Active Substance: MEFENAMIC ACID
     Indication: PAIN MANAGEMENT
     Dosage: AS NECESSARY
     Route: 048
  17. SUMATRIPTAN. [Concomitant]
     Active Substance: SUMATRIPTAN
     Indication: MIGRAINE
     Dosage: AS NECESSARY
     Route: 058
     Dates: start: 2005
  18. VITAMINE D3 B.O.N. [Concomitant]
     Indication: VITAMIN D DEFICIENCY
     Route: 048

REACTIONS (3)
  - Malnutrition [Not Recovered/Not Resolved]
  - Depression [Unknown]
  - Abnormal loss of weight [Not Recovered/Not Resolved]

NARRATIVE: CASE EVENT DATE: 2005
